FAERS Safety Report 13817186 (Version 1)
Quarter: 2017Q3

REPORT INFORMATION
  Report Type: Spontaneous
  Country: US (occurrence: US)
  Receive Date: 20170731
  Receipt Date: 20170731
  Transmission Date: 20171127
  Serious: Yes (Other)
  Sender: FDA-Public Use
  Company Number: PHEH2017US022043

PATIENT
  Sex: Female

DRUGS (1)
  1. TASIGNA [Suspect]
     Active Substance: NILOTINIB
     Indication: PRODUCT USED FOR UNKNOWN INDICATION
     Dosage: 200 MG, QD
     Route: 065

REACTIONS (12)
  - Lip swelling [Unknown]
  - Hypersensitivity [Unknown]
  - Mouth swelling [Unknown]
  - Skin papilloma [Unknown]
  - Vertigo [Unknown]
  - Leukaemia [Unknown]
  - Multiple sclerosis [Unknown]
  - Feeling abnormal [Unknown]
  - Onychomadesis [Unknown]
  - Platelet count increased [Unknown]
  - Alopecia [Unknown]
  - Arthritis [Unknown]
